FAERS Safety Report 5940910 (Version 7)
Quarter: 2012Q4

REPORT INFORMATION
  Report Type: Report from Study
  Country: DE (occurrence: KR)
  Receive Date: 20051214
  Receipt Date: 20121005
  Transmission Date: 20130627
  Serious: Yes (Hospitalization)
  Sender: FDA-Public Use
  Company Number: KR-BRISTOL-MYERS SQUIBB COMPANY-13208343

PATIENT
  Age: 38 Year
  Sex: Male

DRUGS (3)
  1. CETUXIMAB [Suspect]
     Indication: NON-SMALL CELL LUNG CANCER
     Dosage: Delayed on 30-Nov-05. Most recent infusion 24-Nov-05 (6th infusion).
     Route: 041
     Dates: start: 20051020
  2. CISPLATIN FOR INJ [Suspect]
     Indication: NON-SMALL CELL LUNG CANCER
     Dosage: Most recent infusion 18-Nov-05 (2nd infusion).
     Route: 042
     Dates: start: 20051020
  3. VINORELBINE [Suspect]
     Indication: NON-SMALL CELL LUNG CANCER
     Dosage: Most recent infusion 24-Nov-05 (4th infusion).
     Route: 042
     Dates: start: 20051020

REACTIONS (3)
  - Cellulitis [Recovered/Resolved]
  - Rash [Recovered/Resolved]
  - Febrile neutropenia [Recovered/Resolved]
